FAERS Safety Report 4417539-5 (Version None)
Quarter: 2004Q3

REPORT INFORMATION
  Report Type: 
  Country: None (occurrence: None)
  Receive Date: 20040804
  Receipt Date: 20040621
  Transmission Date: 20050211
  Serious: Yes (Hospitalization)
  Sender: FDA-Public Use
  Company Number: None

PATIENT
  Sex: Female

DRUGS (1)
  1. METHYLPREDNISOLONE 4 MG TABLETS; PRASCO, LLC [Suspect]
     Dosage: IV DOSE + 4 MG X 3 TABS
     Dates: start: 20040530, end: 20040531

REACTIONS (7)
  - CONTUSION [None]
  - DYSPHAGIA [None]
  - DYSPNOEA [None]
  - FEELING HOT [None]
  - HAEMATEMESIS [None]
  - SWELLING [None]
  - VOMITING [None]
